FAERS Safety Report 8183720-5 (Version None)
Quarter: 2012Q1

REPORT INFORMATION
  Report Type: 
  Country: None (occurrence: None)
  Receive Date: 20120305
  Receipt Date: 20120224
  Transmission Date: 20120608
  Serious: Yes (Hospitalization)
  Sender: FDA-Public Use
  Company Number: PL-JNJFOC-20120213714

PATIENT
  Sex: Female
  Weight: 53 kg

DRUGS (21)
  1. ASPIRIN [Suspect]
     Indication: ACUTE CORONARY SYNDROME
     Route: 048
     Dates: start: 20090101
  2. DIGOXIN [Concomitant]
     Indication: ATRIAL FIBRILLATION
     Route: 048
     Dates: start: 20120213
  3. AMLOZEK [Concomitant]
     Indication: HYPERTENSION
     Route: 048
     Dates: start: 20120215
  4. BISEPTOL [Concomitant]
     Indication: URINARY TRACT INFECTION
     Route: 048
     Dates: start: 20120215, end: 20120220
  5. BISOPROLOL FUMARATE [Concomitant]
     Indication: ATRIAL FIBRILLATION
     Route: 048
     Dates: start: 20090101
  6. DIGOXIN [Concomitant]
     Route: 048
  7. BISOPROLOL FUMARATE [Concomitant]
     Route: 048
  8. XARELTO [Suspect]
     Indication: CEREBRAL INFARCTION
     Route: 048
     Dates: start: 20120216, end: 20120220
  9. XARELTO [Suspect]
     Indication: ATRIAL FIBRILLATION
     Route: 048
  10. XARELTO [Suspect]
     Route: 048
     Dates: start: 20120216, end: 20120220
  11. ATROVENT [Concomitant]
  12. XARELTO [Suspect]
     Route: 048
  13. DIGOXIN [Concomitant]
     Indication: CARDIAC FAILURE
     Route: 048
     Dates: start: 20120213
  14. DIGOXIN [Concomitant]
     Route: 048
  15. PROTON PUMP INHIBITOR [Concomitant]
     Route: 048
     Dates: start: 20120209
  16. FUROSEMIDE [Concomitant]
     Indication: CARDIAC FAILURE
     Route: 048
     Dates: start: 20120220
  17. BISOPROLOL FUMARATE [Concomitant]
     Route: 048
  18. RAMIPRIL [Concomitant]
     Indication: CARDIAC FAILURE
     Route: 048
     Dates: start: 20090101
  19. HALOPERIDOL [Concomitant]
     Indication: DEMENTIA
     Route: 048
     Dates: start: 20120217
  20. BISOPROLOL FUMARATE [Concomitant]
     Indication: CARDIAC FAILURE
     Route: 048
     Dates: start: 20090101
  21. ATORVASTATIN [Concomitant]
     Indication: MYOCARDIAL ISCHAEMIA
     Route: 048
     Dates: start: 20120209

REACTIONS (4)
  - BLOOD CREATININE INCREASED [None]
  - RASH PAPULAR [None]
  - HAEMATURIA [None]
  - PETECHIAE [None]
